FAERS Safety Report 6883041-4 (Version None)
Quarter: 2010Q3

REPORT INFORMATION
  Report Type: 
  Country: None (occurrence: None)
  Receive Date: 20100729
  Receipt Date: 20100722
  Transmission Date: 20110219
  Serious: Yes (Other)
  Sender: FDA-Public Use
  Company Number: US-BRISTOL-MYERS SQUIBB COMPANY-15198609

PATIENT
  Age: 61 Year
  Sex: Female
  Weight: 95 kg

DRUGS (6)
  1. ONGLYZA [Suspect]
     Indication: TYPE 2 DIABETES MELLITUS
     Dates: start: 20100718, end: 20100719
  2. BENICAR [Concomitant]
  3. LEVOTHYROXINE SODIUM [Concomitant]
  4. NEXIUM [Concomitant]
  5. CELEBREX [Concomitant]
  6. SIMVASTATIN [Concomitant]

REACTIONS (1)
  - ANGIOEDEMA [None]
